FAERS Safety Report 4448638-X (Version None)
Quarter: 2004Q3

REPORT INFORMATION
  Report Type: 
  Country: None (occurrence: None)
  Receive Date: 20040909
  Receipt Date: 20040824
  Transmission Date: 20050211
  Serious: Yes (Life-Threatening, Other)
  Sender: FDA-Public Use
  Company Number: DE_040814181

PATIENT
  Age: 51 Year
  Sex: Female

DRUGS (5)
  1. GEMZAR [Suspect]
     Indication: BRONCHIAL CARCINOMA
     Dosage: 1000 MG/M2
     Dates: start: 20040101, end: 20040919
  2. CISPLATIN [Concomitant]
  3. ZOFRAN [Concomitant]
  4. DEXAMETHASONE [Concomitant]
  5. DOCETAXEL [Concomitant]

REACTIONS (7)
  - ACIDOSIS [None]
  - BLOOD PRESSURE IMMEASURABLE [None]
  - CONVULSION [None]
  - HYPOXIA [None]
  - INFUSION RELATED REACTION [None]
  - RENAL FAILURE [None]
  - TACHYCARDIA [None]
